FAERS Safety Report 5146078-1 (Version None)
Quarter: 2006Q4

REPORT INFORMATION
  Report Type: 
  Country: None (occurrence: None)
  Receive Date: 20061108
  Receipt Date: 20061101
  Transmission Date: 20070319
  Serious: Yes (Hospitalization)
  Sender: FDA-Public Use
  Company Number: 2006UW21108

PATIENT
  Age: 16 Year
  Sex: Female

DRUGS (6)
  1. SEROQUEL [Suspect]
     Indication: BIPOLAR DISORDER
     Dates: start: 20060101
  2. TRAZODONE HCL [Suspect]
  3. WELLBUTRIN [Concomitant]
  4. LEVITROL [Concomitant]
  5. TOPAMAX [Concomitant]
  6. UNSPECIFIED BIRTH CONTROL [Concomitant]

REACTIONS (2)
  - ANGER [None]
  - DISSOCIATION [None]
